FAERS Safety Report 7916094-2 (Version None)
Quarter: 2011Q4

REPORT INFORMATION
  Report Type: 
  Country: None (occurrence: None)
  Receive Date: 20111116
  Receipt Date: 20111107
  Transmission Date: 20120403
  Serious: Yes (Hospitalization)
  Sender: FDA-Public Use
  Company Number: US-ROCHE-316553

PATIENT
  Age: 41 Year
  Sex: Female
  Weight: 52.7 kg

DRUGS (12)
  1. DEXAMETHASONE [Suspect]
     Indication: PRODUCT USED FOR UNKNOWN INDICATION
  2. BENADRYL [Concomitant]
  3. XANAX [Concomitant]
     Route: 048
  4. HERCEPTIN [Suspect]
     Dosage: LOADING DOSE. GIVEN ON DAY 1 OF WEEK 13.
     Route: 042
     Dates: start: 20011105, end: 20011105
  5. AMBIEN [Concomitant]
  6. HERCEPTIN [Suspect]
     Indication: BREAST NEOPLASM
     Dosage: MAINTENANCE DOSE. STARTED ON DAY 1, WEEK 14.
     Route: 042
  7. PACLITAXEL [Suspect]
     Indication: BREAST NEOPLASM
     Dosage: STARTING ON DAY 1 OF WEEK 13, FOR 4 CYCLES.
     Route: 042
  8. PAXIL [Concomitant]
     Route: 048
  9. PEPCID [Concomitant]
  10. DOXORUBICIN HCL [Suspect]
     Indication: BREAST NEOPLASM
     Dosage: STARTING ON DAY 1 FOR 4 CYCLES.
     Route: 042
     Dates: start: 20010813, end: 20011015
  11. CYCLOPHOSPHAMIDE [Suspect]
     Indication: BREAST NEOPLASM
     Dosage: STARTING ON DAY 1 FOR 4 CYCLES.
     Route: 042
     Dates: start: 20010813, end: 20011015
  12. AUGMENTIN [Concomitant]

REACTIONS (2)
  - DEPRESSION [None]
  - ANXIETY [None]
